FAERS Safety Report 6943587-7 (Version None)
Quarter: 2010Q3

REPORT INFORMATION
  Report Type: 
  Country: None (occurrence: None)
  Receive Date: 20100826
  Receipt Date: 20100819
  Transmission Date: 20110219
  Serious: Yes (Death)
  Sender: FDA-Public Use
  Company Number: US-AMGEN-QUU388048

PATIENT
  Sex: Female

DRUGS (2)
  1. NPLATE [Suspect]
     Indication: IDIOPATHIC THROMBOCYTOPENIC PURPURA
     Dates: start: 20090120, end: 20090127
  2. CORTICOSTEROIDS [Concomitant]

REACTIONS (1)
  - RENAL FAILURE [None]
